FAERS Safety Report 4559182-3 (Version None)
Quarter: 2005Q1

REPORT INFORMATION
  Report Type: 
  Country: None (occurrence: None)
  Receive Date: 20050121
  Receipt Date: 20050121
  Transmission Date: 20050727
  Serious: Yes (Other)
  Sender: FDA-Public Use
  Company Number: None

PATIENT
  Age: 61 Year
  Sex: Female
  Weight: 55 kg

DRUGS (6)
  1. FORTAZ [Suspect]
     Indication: LUNG INFECTION PSEUDOMONAL
     Dosage: 2 GRAM   EVERY 12 HOURS  INTRAVENOU
     Route: 042
     Dates: start: 20040622, end: 20040624
  2. SEREVENT [Concomitant]
  3. PULMICORT [Concomitant]
  4. GLUCOSAMINE [Concomitant]
  5. ACIDOPHILUS + MVT [Concomitant]
  6. FLONASE [Concomitant]

REACTIONS (7)
  - ATRIOVENTRICULAR BLOCK FIRST DEGREE [None]
  - BLOOD PRESSURE SYSTOLIC INCREASED [None]
  - DYSPNOEA [None]
  - PALPITATIONS [None]
  - RESPIRATORY RATE INCREASED [None]
  - SINUS ARRHYTHMIA [None]
  - TACHYCARDIA [None]
